FAERS Safety Report 16766202 (Version 2)
Quarter: 2019Q3

REPORT INFORMATION
  Report Type: Spontaneous
  Country: FR (occurrence: FR)
  Receive Date: 20190903
  Receipt Date: 20190913
  Transmission Date: 20191005
  Serious: Yes (Death, Other)
  Sender: FDA-Public Use
  Company Number: FR-PFIZER INC-2019376190

PATIENT
  Age: 81 Year
  Sex: Male
  Weight: 88 kg

DRUGS (16)
  1. TERLIPRESSINE [Suspect]
     Active Substance: TERLIPRESSIN
     Dosage: 1 MG, 1X/DAY
     Route: 041
     Dates: start: 20190704
  2. NORADRENALINE MYLAN [Concomitant]
     Active Substance: NOREPINEPHRINE\NOREPINEPHRINE BITARTRATE
     Dosage: UNK
     Route: 042
  3. HEPARINE SODIUM PANPHARMA [Concomitant]
     Active Substance: HEPARIN SODIUM
     Dosage: UNK
     Route: 042
  4. INSULIN [Concomitant]
     Active Substance: INSULIN NOS
     Dosage: UNK
  5. FUROSEMIDE. [Concomitant]
     Active Substance: FUROSEMIDE
     Dosage: UNK
  6. CORDARONE [Suspect]
     Active Substance: AMIODARONE HYDROCHLORIDE
     Dosage: UNK
     Route: 048
     Dates: start: 20190630
  7. RAPIBLOC [Suspect]
     Active Substance: LANDIOLOL HYDROCHLORIDE
     Indication: ATRIAL FIBRILLATION
     Dosage: UNK (4.86 UG/KG/MIN)
     Route: 041
     Dates: start: 20190704
  8. ROWASA [Concomitant]
     Active Substance: MESALAMINE
     Dosage: 2000 MG, 1X/DAY
     Route: 048
  9. ATORVASTATINE ARROW [Concomitant]
     Active Substance: ATORVASTATIN
     Dosage: 80 MG, 1X/DAY
     Route: 048
  10. RESIKALI [Concomitant]
     Active Substance: CALCIUM POLYSTYRENE SULFONATE
     Dosage: 9 DF, 1X/DAY (9 MEASURING SPOONS)
     Route: 048
  11. HYDROCORTISONE UPJOHN [Concomitant]
     Active Substance: HYDROCORTISONE
     Dosage: UNK
     Route: 042
  12. LANDIOLOL HCL [Suspect]
     Active Substance: LANDIOLOL HYDROCHLORIDE
     Indication: ATRIAL FIBRILLATION
     Dosage: 5 UG/KG, QMN (THE INITIAL DOSE WAS 5 UG/KG/MIN. LATER THE DOSE VARIED BETWEEN 1 AND 5 UG/KG/MIN.)
     Route: 042
     Dates: start: 20190706, end: 20190706
  13. CORDARONE [Suspect]
     Active Substance: AMIODARONE HYDROCHLORIDE
     Indication: ARRHYTHMIA SUPRAVENTRICULAR
     Dosage: UNK (NO CORDARONE SINCE 26/06 THEN ADMINISTRATION ON 30/06, 02/07, 04 AND 05/07/2019)
     Route: 048
     Dates: end: 20190626
  14. CORDARONE [Suspect]
     Active Substance: AMIODARONE HYDROCHLORIDE
     Dosage: UNK
     Route: 048
     Dates: start: 20190704
  15. CORDARONE [Suspect]
     Active Substance: AMIODARONE HYDROCHLORIDE
     Dosage: UNK
     Route: 048
     Dates: start: 20190702
  16. CORDARONE [Suspect]
     Active Substance: AMIODARONE HYDROCHLORIDE
     Dosage: UNK
     Route: 048
     Dates: start: 20190705

REACTIONS (2)
  - Cardiac arrest [Fatal]
  - Bradycardia [Not Recovered/Not Resolved]

NARRATIVE: CASE EVENT DATE: 20190706
